FAERS Safety Report 5097928-9 (Version None)
Quarter: 2006Q3

REPORT INFORMATION
  Report Type: 
  Country: None (occurrence: None)
  Receive Date: 20060905
  Receipt Date: 20060905
  Transmission Date: 20061208
  Serious: Yes (Hospitalization)
  Sender: FDA-Public Use
  Company Number: None

PATIENT
  Age: 74 Year
  Sex: Male
  Weight: 64.4108 kg

DRUGS (2)
  1. PENTAZOCINE/NALOXONE AMIDE [Suspect]
     Indication: TOOTH ABSCESS
     Dosage: 1 TABLET BY MOUTH EVERY 4 HOURS PO
     Route: 048
     Dates: start: 20060901, end: 20060901
  2. PENTAZOCINE/NALOXONE AMIDE [Suspect]
     Indication: TOOTH ABSCESS
     Dosage: 1 TABLET BY MOUTH EVERY 4 HOURS PO
     Route: 048
     Dates: start: 20060901, end: 20060901

REACTIONS (5)
  - BED REST [None]
  - DISORIENTATION [None]
  - MUSCULAR WEAKNESS [None]
  - NAUSEA [None]
  - VOMITING [None]
